FAERS Safety Report 16196034 (Version 1)
Quarter: 2019Q2

REPORT INFORMATION
  Report Type: Spontaneous
  Country: FR (occurrence: FR)
  Receive Date: 20190415
  Receipt Date: 20190415
  Transmission Date: 20190711
  Serious: Yes (Congenital Anomaly, Other)
  Sender: FDA-Public Use
  Company Number: FR-AUROBINDO-AUR-APL-2019-019659

PATIENT

DRUGS (3)
  1. OLANZAPINE. [Suspect]
     Active Substance: OLANZAPINE
     Indication: BIPOLAR DISORDER
     Dosage: 10 MILLIGRAM,IF NECESSARY
     Route: 065
     Dates: start: 201712, end: 20190104
  2. ARIPIPRAZOLE. [Suspect]
     Active Substance: ARIPIPRAZOLE
     Indication: BIPOLAR DISORDER
     Dosage: 20 MILLIGRAM
     Route: 065
     Dates: start: 201712, end: 20190104
  3. SERESTA [Suspect]
     Active Substance: OXAZEPAM
     Indication: ANXIETY
     Dosage: 20 MILLIGRAM
     Route: 065
     Dates: start: 201712, end: 20190104

REACTIONS (1)
  - Cleft palate [Recovered/Resolved with Sequelae]

NARRATIVE: CASE EVENT DATE: 20190104
